FAERS Safety Report 4893999-0 (Version None)
Quarter: 2005Q4

REPORT INFORMATION
  Report Type: 
  Country: None (occurrence: None)
  Receive Date: 20051223
  Receipt Date: 20051024
  Transmission Date: 20060501
  Serious: No
  Sender: FDA-Public Use
  Company Number: 2005PV003535

PATIENT
  Age: 48 Year
  Sex: Male
  Weight: 199.5827 kg

DRUGS (6)
  1. SYMLIN [Suspect]
     Indication: DIABETES MELLITUS NON-INSULIN-DEPENDENT
     Dosage: 120 MCG; TID; SC; SEE IMAGE
     Route: 058
     Dates: start: 20051012, end: 20050101
  2. SYMLIN [Suspect]
     Indication: DIABETES MELLITUS NON-INSULIN-DEPENDENT
     Dosage: 120 MCG; TID; SC; SEE IMAGE
     Route: 058
     Dates: start: 20051017
  3. METFORMIN [Concomitant]
  4. NOVOLIN 70/30 [Concomitant]
  5. NOVOLOG [Concomitant]
  6. ACTOS [Concomitant]

REACTIONS (6)
  - ABDOMINAL DISTENSION [None]
  - ARTHRALGIA [None]
  - BLOOD GLUCOSE INCREASED [None]
  - DECREASED APPETITE [None]
  - DRUG EFFECT DECREASED [None]
  - WEIGHT DECREASED [None]
